FAERS Safety Report 5957922-X (Version None)
Quarter: 2008Q4

REPORT INFORMATION
  Report Type: 
  Country: None (occurrence: None)
  Receive Date: 20081119
  Receipt Date: 20081111
  Transmission Date: 20090506
  Serious: Yes (Other)
  Sender: FDA-Public Use
  Company Number: JP-BAXTER-2008BH011712

PATIENT
  Age: 12 Year
  Sex: Male

DRUGS (6)
  1. ENDOXAN BAXTER [Suspect]
     Indication: RHABDOMYOSARCOMA
     Route: 065
     Dates: start: 19960101
  2. ETOPOSIDE [Suspect]
     Indication: RHABDOMYOSARCOMA
     Route: 065
     Dates: start: 19960101
  3. VINCRISTINE SULFATE [Suspect]
     Indication: RHABDOMYOSARCOMA
     Route: 065
     Dates: start: 19960101
  4. DOXORUBICIN HYDROCHLORIDE [Suspect]
     Indication: RHABDOMYOSARCOMA
     Route: 065
     Dates: start: 19960101
  5. CISPLATIN [Suspect]
     Indication: RHABDOMYOSARCOMA
     Route: 065
     Dates: start: 19960101
  6. DACTINOMYCIN [Suspect]
     Indication: RHABDOMYOSARCOMA
     Route: 065
     Dates: start: 19960101

REACTIONS (1)
  - BONE SARCOMA [None]
